FAERS Safety Report 4486190-3 (Version None)
Quarter: 2004Q4

REPORT INFORMATION
  Report Type: 
  Country: None (occurrence: None)
  Receive Date: 20041026
  Receipt Date: 20041021
  Transmission Date: 20050328
  Serious: Yes (Death, Hospitalization, Other)
  Sender: FDA-Public Use
  Company Number: US-MERCK-0410USA03285

PATIENT
  Sex: Female

DRUGS (5)
  1. VIOXX [Suspect]
     Indication: FOOT FRACTURE
     Route: 048
     Dates: start: 20010101
  2. CLONIDINE [Concomitant]
     Route: 065
  3. INSULIN [Concomitant]
     Route: 065
  4. PROCARDIA [Concomitant]
     Route: 065
  5. TYLENOL [Concomitant]
     Route: 065

REACTIONS (4)
  - CEREBROVASCULAR ACCIDENT [None]
  - DIALYSIS [None]
  - MYOCARDIAL INFARCTION [None]
  - RENAL FAILURE [None]
